FAERS Safety Report 11443245 (Version 2)
Quarter: 2015Q3

REPORT INFORMATION
  Report Type: Spontaneous
  Country: US (occurrence: None)
  Receive Date: 20150901
  Receipt Date: 20150922
  Transmission Date: 20151125
  Serious: Yes (Other)
  Sender: FDA-Public Use
  Company Number: ADR-2015-01607

PATIENT
  Age: 11 Year
  Sex: Male

DRUGS (2)
  1. BACLOFEN ORAL 30MG [Suspect]
     Active Substance: BACLOFEN
     Dosage: 3X DAILY
  2. LIORESAL [Suspect]
     Active Substance: BACLOFEN
     Dosage: 900.9 MCG/DAY

REACTIONS (1)
  - Therapeutic response decreased [None]
